FAERS Safety Report 9351248 (Version 1)
Quarter: 2013Q2

REPORT INFORMATION
  Report Type: Spontaneous
  Country: US (occurrence: US)
  Receive Date: 20130617
  Receipt Date: 20130617
  Transmission Date: 20140414
  Serious: Yes (Hospitalization)
  Sender: FDA-Public Use
  Company Number: US-BAYER-2013-073231

PATIENT
  Age: 33 Year
  Sex: Female

DRUGS (3)
  1. YASMIN [Suspect]
  2. ZITHROMAX [Concomitant]
     Indication: BRONCHITIS
  3. PREDNISONE [Concomitant]

REACTIONS (1)
  - Pulmonary embolism [Recovered/Resolved]
